FAERS Safety Report 15963574 (Version 2)
Quarter: 2019Q1

REPORT INFORMATION
  Report Type: Spontaneous
  Country: US (occurrence: US)
  Receive Date: 20190214
  Receipt Date: 20190219
  Transmission Date: 20190417
  Serious: No
  Sender: FDA-Public Use
  Company Number: US-PFIZER INC-2019056028

PATIENT
  Age: 50 Year
  Sex: Female
  Weight: 65.77 kg

DRUGS (1)
  1. CHANTIX [Suspect]
     Active Substance: VARENICLINE TARTRATE
     Indication: SMOKING CESSATION THERAPY
     Dosage: 1 MG, 2X/DAY
     Route: 048
     Dates: end: 20190128

REACTIONS (2)
  - Confusional state [Unknown]
  - Agitation [Not Recovered/Not Resolved]

NARRATIVE: CASE EVENT DATE: 2019
